FAERS Safety Report 25057638 (Version 1)
Quarter: 2025Q1

REPORT INFORMATION
  Report Type: Spontaneous
  Country: IN (occurrence: IN)
  Receive Date: 20250310
  Receipt Date: 20250310
  Transmission Date: 20250409
  Serious: Yes (Hospitalization, Other)
  Sender: NOVITIUM PHARMA
  Company Number: IN-NOVITIUMPHARMA-2025INNVP00599

PATIENT
  Age: 72 Year
  Sex: Female

DRUGS (3)
  1. DEXAMETHASONE [Suspect]
     Active Substance: DEXAMETHASONE
     Indication: Macular oedema
  2. MOXIFLOXACIN [Concomitant]
     Active Substance: MOXIFLOXACIN
     Indication: Infection prophylaxis
  3. MOXIFLOXACIN [Concomitant]
     Active Substance: MOXIFLOXACIN
     Route: 061

REACTIONS (2)
  - Endophthalmitis [Recovering/Resolving]
  - Infection masked [Unknown]
